FAERS Safety Report 19885103 (Version 3)
Quarter: 2021Q4

REPORT INFORMATION
  Report Type: Report from Study
  Country: ES (occurrence: None)
  Receive Date: 20210927
  Receipt Date: 20211221
  Transmission Date: 20220303
  Serious: Yes (Death, Other)
  Sender: FDA-Public Use
  Company Number: ES-ROCHE-2911795

PATIENT

DRUGS (16)
  1. TOCILIZUMAB [Suspect]
     Active Substance: TOCILIZUMAB
     Indication: Cytokine storm
     Dosage: 8 MG/KG IN PATIENTS WEIGHING  30 KG OR 12 MG/KG IN PATIENTS WEIGHING 30 KG AS A 60-MINUTE IV INFUSIO
     Route: 042
     Dates: start: 20200401
  2. TOCILIZUMAB [Suspect]
     Active Substance: TOCILIZUMAB
     Indication: COVID-19
     Route: 042
     Dates: start: 20200420
  3. TOCILIZUMAB [Suspect]
     Active Substance: TOCILIZUMAB
     Route: 042
     Dates: start: 20200422
  4. FUROSEMIDE [Concomitant]
     Active Substance: FUROSEMIDE
     Indication: Renal failure
     Dates: start: 20200420, end: 20200429
  5. INSULIN GLARGINE [Concomitant]
     Active Substance: INSULIN GLARGINE
     Dates: start: 20200420, end: 20200425
  6. ASPIRIN [Concomitant]
     Active Substance: ASPIRIN
     Indication: Myocardial ischaemia
     Dates: start: 20200420, end: 20200428
  7. ENOXAPARIN [Concomitant]
     Active Substance: ENOXAPARIN
     Dosage: VENOUS THROMBOEMBOLIC DISEASE PROPHYLAXIS
     Dates: start: 20200420, end: 20200424
  8. METHYLPREDNISOLONE [Concomitant]
     Active Substance: METHYLPREDNISOLONE
     Indication: COVID-19
     Dates: start: 20200420, end: 20200424
  9. PANTOPRAZOLE [Concomitant]
     Active Substance: PANTOPRAZOLE
     Dates: start: 20200420
  10. DOXICYCLINE [Concomitant]
     Dosage: INCLUYED IN THE LOCAL COVID PROTOCOL  TREATMENT FOR PATIENTS WITH POOR CLINICAL COURSE
     Dates: start: 20200420
  11. ACETYLCYSTEINE [Concomitant]
     Active Substance: ACETYLCYSTEINE
     Dosage: INCLUYED IN THELOCAL COVID TREATMENT PROTOCOL FOR PATIENTS WITH POOR CLINICAL OR RADIOLOGICAL COURSE
     Dates: start: 20200421, end: 20200424
  12. MORPHINE [Concomitant]
     Active Substance: MORPHINE
     Dosage: DYSPNEA DUE TO POOR CLINICAL COURSE OF COVID19 INFECTION
     Dates: start: 20200424
  13. AMLODIPINE [Concomitant]
     Active Substance: AMLODIPINE BESYLATE
     Indication: Hypertension
     Dates: start: 20200424
  14. ATORVASTATIN [Concomitant]
     Active Substance: ATORVASTATIN
     Dates: start: 20200424
  15. CLOPIDOGREL [Concomitant]
     Active Substance: CLOPIDOGREL BISULFATE
     Indication: Myocardial ischaemia
     Dates: start: 20200424
  16. ENOXAPARIN [Concomitant]
     Active Substance: ENOXAPARIN
     Indication: Disease risk factor
     Dates: start: 20200424

REACTIONS (2)
  - Respiratory failure [Fatal]
  - Red blood cell count decreased [Recovered/Resolved]

NARRATIVE: CASE EVENT DATE: 20200421
